FAERS Safety Report 5796444-6 (Version None)
Quarter: 2008Q3

REPORT INFORMATION
  Report Type: 
  Country: None (occurrence: None)
  Receive Date: 20080701
  Receipt Date: 20080620
  Transmission Date: 20090109
  Serious: Yes (Hospitalization, Other)
  Sender: FDA-Public Use
  Company Number: PHHY2008CH11554

PATIENT
  Age: 46 Year
  Sex: Female

DRUGS (8)
  1. TEGRETOL [Suspect]
     Indication: EPILEPSY
     Dosage: 600 MG, QD
     Dates: start: 19950101
  2. ANAFRANIL [Suspect]
     Indication: DEPRESSION
     Dosage: 75 MG, QD
     Dates: start: 20080101
  3. FENTANYL [Concomitant]
     Indication: PAIN
     Dosage: 25 UG, QD
     Route: 062
     Dates: start: 20080101
  4. CLONAZEPAM [Concomitant]
     Indication: EPILEPSY
     Dosage: 0.5 MG, QD
     Dates: start: 20080101
  5. MORPHINE [Concomitant]
     Dosage: 12.5 MG, UNK
     Route: 058
     Dates: start: 20080423
  6. DAFALGAN [Concomitant]
     Dosage: 3 G, QD
     Dates: start: 20080423
  7. PULMICORT-100 [Concomitant]
     Dosage: UNK
     Dates: start: 20080101
  8. DOSPIR [Concomitant]

REACTIONS (4)
  - AGITATION [None]
  - DRUG INEFFECTIVE [None]
  - DRUG INTERACTION [None]
  - SUICIDAL IDEATION [None]
